FAERS Safety Report 17360689 (Version 3)
Quarter: 2020Q1

REPORT INFORMATION
  Report Type: Report from Study
  Country: None (occurrence: BE)
  Receive Date: 20200203
  Receipt Date: 20200217
  Transmission Date: 20200409
  Serious: Yes (Hospitalization, Other)
  Sender: FDA-Public Use
  Company Number: BE-ABBVIE-19K-013-2835335-00

PATIENT
  Sex: Male

DRUGS (4)
  1. DUODOPA [Suspect]
     Active Substance: CARBIDOPA\LEVODOPA
     Dosage: MD=14ML, CD=4.4ML/HR DURING 16HRS, ED=2ML
     Route: 050
     Dates: start: 20190306, end: 20190627
  2. DUODOPA [Suspect]
     Active Substance: CARBIDOPA\LEVODOPA
     Indication: PARKINSON^S DISEASE
     Dosage: MD=10ML, CD=3.5ML/HR DURING 16HRS, ED=1ML
     Route: 050
     Dates: start: 20180716, end: 20180717
  3. DUODOPA [Suspect]
     Active Substance: CARBIDOPA\LEVODOPA
     Dosage: DOSES CONTINUOUSLY MONITORED AND ADAPTED
     Route: 050
     Dates: start: 20180717, end: 20190306
  4. DUODOPA [Suspect]
     Active Substance: CARBIDOPA\LEVODOPA
     Dosage: MD=14ML, CD=4.6ML/HR DURING 16HRS, ED=2ML
     Route: 050
     Dates: start: 20190627

REACTIONS (13)
  - Device dislocation [Unknown]
  - Device issue [Recovered/Resolved]
  - Fracture [Unknown]
  - Auditory disorder [Unknown]
  - Suicidal ideation [Unknown]
  - Stoma site infection [Not Recovered/Not Resolved]
  - Fall [Recovered/Resolved]
  - Dyskinesia [Unknown]
  - Stoma site haemorrhage [Recovered/Resolved]
  - Stoma site discharge [Not Recovered/Not Resolved]
  - Freezing phenomenon [Unknown]
  - Balance disorder [Unknown]
  - Stoma site hypergranulation [Not Recovered/Not Resolved]

NARRATIVE: CASE EVENT DATE: 2019
